FAERS Safety Report 6300504-0 (Version None)
Quarter: 2009Q3

REPORT INFORMATION
  Report Type: 
  Country: None (occurrence: None)
  Receive Date: 20090806
  Receipt Date: 20090107
  Transmission Date: 20100115
  Serious: No
  Sender: FDA-Public Use
  Company Number: US-ABBOTT-09P-163-0496501-00

PATIENT
  Sex: Female

DRUGS (4)
  1. DEPAKOTE ER [Suspect]
     Indication: DRUG USE FOR UNKNOWN INDICATION
     Route: 048
     Dates: end: 20081023
  2. CLOZAPINE [Concomitant]
     Indication: SCHIZOAFFECTIVE DISORDER
     Dosage: 75-417 ANDA PILLS
     Route: 048
     Dates: end: 20081023
  3. CLOZAPINE [Concomitant]
  4. LITHIUM [Concomitant]
     Indication: SCHIZOAFFECTIVE DISORDER

REACTIONS (1)
  - GRANULOCYTOPENIA [None]
